FAERS Safety Report 4964697-X (Version None)
Quarter: 2006Q1

REPORT INFORMATION
  Report Type: 
  Country: None (occurrence: None)
  Receive Date: 20060331
  Receipt Date: 20060317
  Transmission Date: 20060701
  Serious: Yes (Other)
  Sender: FDA-Public Use
  Company Number: US200603001107

PATIENT
  Age: 62 Year
  Sex: Male
  Weight: 89.8 kg

DRUGS (3)
  1. CYMBALTA [Suspect]
     Indication: DEPRESSION
     Dosage: SEE IMAGE
     Dates: start: 20060201, end: 20060214
  2. CYMBALTA [Suspect]
     Indication: DEPRESSION
     Dosage: SEE IMAGE
     Dates: start: 20060215, end: 20060301
  3. KLONOPIN [Concomitant]

REACTIONS (1)
  - URETHRAL DISCHARGE [None]
